FAERS Safety Report 4382133-1 (Version None)
Quarter: 2004Q2

REPORT INFORMATION
  Report Type: 
  Country: None (occurrence: None)
  Receive Date: 20040621
  Receipt Date: 20030404
  Transmission Date: 20050107
  Serious: Yes (Life-Threatening, Hospitalization)
  Sender: FDA-Public Use
  Company Number: NUBN20030007

PATIENT
  Sex: Male

DRUGS (3)
  1. NUBAIN [Suspect]
     Indication: SHOULDER DYSTOCIA
     Dosage: 20 MG ONCE IM
     Route: 030
     Dates: start: 20030209, end: 20030209
  2. SUFENTA [Suspect]
     Indication: NORMAL LABOUR
     Dosage: 2ML ONCE EPID
     Route: 008
     Dates: start: 20030209, end: 20030209
  3. NAROPEINE 2MG [Suspect]
     Indication: LABOUR PAIN
     Dosage: 2 MG ONCE EPID
     Route: 008
     Dates: start: 20030209, end: 20030209

REACTIONS (5)
  - BRADYCARDIA [None]
  - CYANOSIS NEONATAL [None]
  - HYPOTONIA NEONATAL [None]
  - NEONATAL APNOEIC ATTACK [None]
  - NEONATAL RESPIRATORY DEPRESSION [None]
